FAERS Safety Report 20835595 (Version 5)
Quarter: 2022Q4

REPORT INFORMATION
  Report Type: Report from Study
  Country: US (occurrence: US)
  Receive Date: 20220516
  Receipt Date: 20221115
  Transmission Date: 20230113
  Serious: No
  Sender: FDA-Public Use
  Company Number: US-NOVARTISTESTPH-NVSC2022US112503

PATIENT
  Sex: Male

DRUGS (1)
  1. COSENTYX [Suspect]
     Active Substance: SECUKINUMAB
     Indication: Ankylosing spondylitis
     Dosage: 150 MG, ONCE A WEEK FOR 5 WEEKS THEN ONCE
     Route: 058

REACTIONS (4)
  - Neuralgia [Recovering/Resolving]
  - Herpes zoster [Recovering/Resolving]
  - Inflammation [Unknown]
  - Drug ineffective [Unknown]
